FAERS Safety Report 17408127 (Version 5)
Quarter: 2021Q4

REPORT INFORMATION
  Report Type: Spontaneous
  Country: US (occurrence: US)
  Receive Date: 20200212
  Receipt Date: 20211015
  Transmission Date: 20220303
  Serious: Yes (Hospitalization, Other)
  Sender: FDA-Public Use
  Company Number: US-GILEAD-2020-0450627

PATIENT
  Age: 52 Year
  Sex: Male

DRUGS (102)
  1. VIREAD [Suspect]
     Active Substance: TENOFOVIR DISOPROXIL FUMARATE
     Indication: HIV infection
     Dosage: UNK
     Route: 048
     Dates: start: 2001, end: 20180107
  2. VIREAD [Suspect]
     Active Substance: TENOFOVIR DISOPROXIL FUMARATE
     Dosage: UNK
     Route: 048
     Dates: start: 2002, end: 201811
  3. VIREAD [Suspect]
     Active Substance: TENOFOVIR DISOPROXIL FUMARATE
     Dosage: UNK
     Route: 048
     Dates: start: 20091205, end: 20180117
  4. KALETRA [Suspect]
     Active Substance: LOPINAVIR\RITONAVIR
     Indication: HIV infection
     Route: 065
  5. TENOFOVIR DISOPROXIL FUMARATE [Suspect]
     Active Substance: TENOFOVIR DISOPROXIL FUMARATE
     Indication: HIV infection
     Dosage: UNK
     Route: 065
     Dates: start: 201801
  6. TENOFOVIR [Suspect]
     Active Substance: TENOFOVIR
     Indication: HIV infection
     Dosage: UNK
     Route: 065
     Dates: start: 201803, end: 20180621
  7. DESCOVY [Concomitant]
     Active Substance: EMTRICITABINE\TENOFOVIR ALAFENAMIDE FUMARATE
  8. LISINOPRIL [Concomitant]
     Active Substance: LISINOPRIL
  9. KETOCONAZOLE [Concomitant]
     Active Substance: KETOCONAZOLE
  10. ZIAGEN [Concomitant]
     Active Substance: ABACAVIR SULFATE
  11. KLOR-CON [Concomitant]
     Active Substance: POTASSIUM CHLORIDE
  12. ONDANSETRON [Concomitant]
     Active Substance: ONDANSETRON
  13. MAGNESIUM GLUCONATE [Concomitant]
     Active Substance: MAGNESIUM GLUCONATE
  14. LEVETIRACETAM [Concomitant]
     Active Substance: LEVETIRACETAM
  15. NYSTATIN [Concomitant]
     Active Substance: NYSTATIN
  16. NEXIUM I.V. [Concomitant]
     Active Substance: ESOMEPRAZOLE SODIUM
  17. FLUCONAZOLE [Concomitant]
     Active Substance: FLUCONAZOLE
  18. CLOTRIMAZOLE [Concomitant]
     Active Substance: CLOTRIMAZOLE
  19. ATENOLOL [Concomitant]
     Active Substance: ATENOLOL
  20. TERBINAFINE [Concomitant]
     Active Substance: TERBINAFINE
  21. ZOLPIDEM [Concomitant]
     Active Substance: ZOLPIDEM TARTRATE
  22. PHENADOZ [Concomitant]
     Active Substance: PROMETHAZINE HYDROCHLORIDE
  23. VERAMYST [Concomitant]
     Active Substance: FLUTICASONE FUROATE
  24. AMOXICILLIN [Concomitant]
     Active Substance: AMOXICILLIN
  25. BACTROBAN [Concomitant]
     Active Substance: MUPIROCIN\MUPIROCIN CALCIUM
  26. AZITHROMYCIN ANHYDROUS [Concomitant]
     Active Substance: AZITHROMYCIN ANHYDROUS
  27. ORAVIG [Concomitant]
     Active Substance: MICONAZOLE
  28. MORPHINE SULFATE [Concomitant]
     Active Substance: MORPHINE SULFATE
  29. CHLORHEXIDINE [Concomitant]
     Active Substance: CHLORHEXIDINE
  30. METOPROLOL [Concomitant]
     Active Substance: METOPROLOL
  31. MEGACE [Concomitant]
     Active Substance: MEGESTROL ACETATE
  32. PROMETHAZINE [Concomitant]
     Active Substance: PROMETHAZINE HYDROCHLORIDE
  33. MUPIROCIN [Concomitant]
     Active Substance: MUPIROCIN
  34. SERTRALINE [Concomitant]
     Active Substance: SERTRALINE HYDROCHLORIDE
  35. FEXOFENADINE [Concomitant]
     Active Substance: FEXOFENADINE HYDROCHLORIDE
  36. DAPSONE [Concomitant]
     Active Substance: DAPSONE
  37. ANUCORT-HC [Concomitant]
     Active Substance: HYDROCORTISONE ACETATE
  38. AVELOX [Concomitant]
     Active Substance: MOXIFLOXACIN HYDROCHLORIDE
  39. BETAMETHASONE\CLOTRIMAZOLE [Concomitant]
     Active Substance: BETAMETHASONE\CLOTRIMAZOLE
  40. IMIQUIMOD [Concomitant]
     Active Substance: IMIQUIMOD
  41. BISACODYL [Concomitant]
     Active Substance: BISACODYL
  42. ACEPHEN [PARACETAMOL] [Concomitant]
  43. VITAMIN B6 [Concomitant]
     Active Substance: PYRIDOXINE HYDROCHLORIDE
  44. ESCITALOPRAM [Concomitant]
     Active Substance: ESCITALOPRAM OXALATE
  45. CONDYLOX [Concomitant]
     Active Substance: PODOFILOX
  46. PROPRANOLOL [Concomitant]
     Active Substance: PROPRANOLOL HYDROCHLORIDE
  47. WAL FEX [Concomitant]
     Active Substance: FEXOFENADINE HYDROCHLORIDE
  48. FOLIC ACID [Concomitant]
     Active Substance: FOLIC ACID
  49. POTASSIUM CHLORIDE [Concomitant]
     Active Substance: POTASSIUM CHLORIDE
  50. LEXAPRO [Concomitant]
     Active Substance: ESCITALOPRAM OXALATE
  51. ALLEGRA [Concomitant]
     Active Substance: FEXOFENADINE HYDROCHLORIDE
  52. ABACAVIR [Concomitant]
     Active Substance: ABACAVIR
  53. AMOXICILLIN\CLAVULANATE POTASSIUM [Concomitant]
     Active Substance: AMOXICILLIN\CLAVULANATE POTASSIUM
  54. LOPERAMIDE [Concomitant]
     Active Substance: LOPERAMIDE
  55. PROMETHEGAN [Concomitant]
     Active Substance: PROMETHAZINE HYDROCHLORIDE
  56. LEVOFLOXACIN [Concomitant]
     Active Substance: LEVOFLOXACIN
  57. ENSURE ACTIVE HIGH PROTEIN [Concomitant]
  58. CIPROFLOXACIN [Concomitant]
     Active Substance: CIPROFLOXACIN
  59. SULFAMETHOXAZOLE\TRIMETHOPRIM [Concomitant]
     Active Substance: SULFAMETHOXAZOLE\TRIMETHOPRIM
  60. ACETAMINOPHEN\HYDROCODONE [Concomitant]
     Active Substance: ACETAMINOPHEN\HYDROCODONE
  61. CEPHALEXIN [Concomitant]
     Active Substance: CEPHALEXIN
  62. HYDROCORTISONE VALERATE [Concomitant]
     Active Substance: HYDROCORTISONE VALERATE
  63. FLUOXETINE [Concomitant]
     Active Substance: FLUOXETINE HYDROCHLORIDE
  64. ESOMEPRAZOLE MAGNESIUM [Concomitant]
     Active Substance: ESOMEPRAZOLE MAGNESIUM
  65. KENALOG [Concomitant]
     Active Substance: TRIAMCINOLONE ACETONIDE
  66. METHYLPREDNISOLONE [Concomitant]
     Active Substance: METHYLPREDNISOLONE
  67. ALPRAZOLAM [Concomitant]
     Active Substance: ALPRAZOLAM
  68. METRONIDAZOLE [Concomitant]
     Active Substance: METRONIDAZOLE
  69. MOXIFLOXACIN [Concomitant]
     Active Substance: MOXIFLOXACIN
  70. TRIAMCINOLONE [Concomitant]
     Active Substance: TRIAMCINOLONE
  71. FLUOCINONIDE [Concomitant]
     Active Substance: FLUOCINONIDE
  72. CLINDAMYCIN [Concomitant]
     Active Substance: CLINDAMYCIN
  73. OMEPRAZOLE [Concomitant]
     Active Substance: OMEPRAZOLE
  74. DIAZEPAM [Concomitant]
     Active Substance: DIAZEPAM
  75. CETIRIZINE [Concomitant]
     Active Substance: CETIRIZINE HYDROCHLORIDE
  76. HYDROXYZINE HYDROCHLORIDE [Concomitant]
     Active Substance: HYDROXYZINE HYDROCHLORIDE
  77. LORAZEPAM [Concomitant]
     Active Substance: LORAZEPAM
  78. FENTANYL [Concomitant]
     Active Substance: FENTANYL
  79. PROAIR HFA [Concomitant]
     Active Substance: ALBUTEROL SULFATE
  80. PROVENTIL HFA [Concomitant]
     Active Substance: ALBUTEROL SULFATE
  81. MUCUS RELIEF [Concomitant]
     Active Substance: GUAIFENESIN
  82. AMCINONIDE [Concomitant]
     Active Substance: AMCINONIDE
  83. PREDNISONE [Concomitant]
     Active Substance: PREDNISONE
  84. TACROLIMUS [Concomitant]
     Active Substance: TACROLIMUS
  85. CLOBETASOL PROPIONATE [Concomitant]
     Active Substance: CLOBETASOL PROPIONATE
  86. HALOBETASOL PROPIONATE [Concomitant]
     Active Substance: HALOBETASOL PROPIONATE
  87. VITAMIN B1 [Concomitant]
     Active Substance: THIAMINE HYDROCHLORIDE
  88. TRAZODONE [Concomitant]
     Active Substance: TRAZODONE HYDROCHLORIDE
  89. DOXYCYCLINE HYCLATE [Concomitant]
     Active Substance: DOXYCYCLINE HYCLATE
  90. AMMONIUM LACTATE [Concomitant]
     Active Substance: AMMONIUM LACTATE
  91. CALCIPOTRIENE [Concomitant]
     Active Substance: CALCIPOTRIENE
  92. AMLODIPINE BESYLATE [Concomitant]
     Active Substance: AMLODIPINE BESYLATE
  93. CALCITRIOL [Concomitant]
     Active Substance: CALCITRIOL
  94. TIVICAY [Concomitant]
     Active Substance: DOLUTEGRAVIR SODIUM
  95. CYCLOPHOSPHAMIDE [Concomitant]
     Active Substance: CYCLOPHOSPHAMIDE
  96. GABAPENTIN [Concomitant]
     Active Substance: GABAPENTIN
  97. FUROSEMIDE [Concomitant]
     Active Substance: FUROSEMIDE
  98. OFLOXACIN [Concomitant]
     Active Substance: OFLOXACIN
  99. ELIQUIS [Concomitant]
     Active Substance: APIXABAN
  100. DOXEPIN [Concomitant]
     Active Substance: DOXEPIN
  101. INSULIN NOS [Concomitant]
     Active Substance: INSULIN NOS
  102. PROTONIX [Concomitant]
     Active Substance: PANTOPRAZOLE SODIUM

REACTIONS (13)
  - Anti-neutrophil cytoplasmic antibody positive vasculitis [Unknown]
  - Chronic kidney disease [Not Recovered/Not Resolved]
  - Chronic kidney disease [Not Recovered/Not Resolved]
  - Chronic kidney disease [Not Recovered/Not Resolved]
  - Renal tubular acidosis [Unknown]
  - Acute kidney injury [Unknown]
  - Renal failure [Not Recovered/Not Resolved]
  - Bone metabolism disorder [Not Recovered/Not Resolved]
  - Pain [Unknown]
  - Emotional distress [Unknown]
  - Anxiety [Unknown]
  - Anhedonia [Unknown]
  - Economic problem [Unknown]

NARRATIVE: CASE EVENT DATE: 20100319
